FAERS Safety Report 5321083-0 (Version None)
Quarter: 2007Q2

REPORT INFORMATION
  Report Type: 
  Country: None (occurrence: None)
  Receive Date: 20070504
  Receipt Date: 20070418
  Transmission Date: 20071010
  Serious: Yes (Hospitalization)
  Sender: FDA-Public Use
  Company Number: DSA_61527_2007

PATIENT
  Age: 53 Year
  Sex: Male

DRUGS (7)
  1. MIGRANAL [Suspect]
     Indication: HEADACHE
     Dosage: (MIGRANAL WAS BEING TAKEN DAILY, BUT NO MORE THAN 6 TIMES PER WEEK. NASAL)
     Route: 045
     Dates: start: 20070301, end: 20070301
  2. COUMADIN [Suspect]
     Dosage: ORAL
     Route: 048
     Dates: end: 20070301
  3. PREDNISONE TAB [Suspect]
     Indication: HEADACHE
     Dosage: PREDNISONE TAPER ORAL)
     Route: 048
     Dates: start: 20070301, end: 20070301
  4. LEVOTHYROXINE SODIUM [Concomitant]
  5. CRESTOR [Concomitant]
  6. ATENOLOL [Concomitant]
  7. IMITREX [Concomitant]

REACTIONS (3)
  - DEEP VEIN THROMBOSIS [None]
  - INCORRECT DOSE ADMINISTERED [None]
  - INTERNATIONAL NORMALISED RATIO INCREASED [None]
